FAERS Safety Report 4938962-6 (Version None)
Quarter: 2006Q1

REPORT INFORMATION
  Report Type: 
  Country: None (occurrence: None)
  Receive Date: 20060306
  Receipt Date: 20060221
  Transmission Date: 20060701
  Serious: Yes (Death, Other)
  Sender: FDA-Public Use
  Company Number: 2006BH003730

PATIENT
  Age: 15 Month
  Sex: Male

DRUGS (1)
  1. RECOMBINATE [Suspect]
     Indication: FACTOR VIII DEFICIENCY
     Dosage: 3X A WEEK

REACTIONS (19)
  - ACUTE RESPIRATORY DISTRESS SYNDROME [None]
  - CARDIAC ARREST [None]
  - CARDIAC VALVE VEGETATION [None]
  - CATHETER SITE HAEMATOMA [None]
  - ENDOCARDITIS [None]
  - FACTOR VIII INHIBITION [None]
  - FALL [None]
  - GENERAL PHYSICAL HEALTH DETERIORATION [None]
  - HAEMORRHAGE [None]
  - INCREASED BRONCHIAL SECRETION [None]
  - INTRACARDIAC THROMBUS [None]
  - PNEUMONIA [None]
  - POOR VENOUS ACCESS [None]
  - PULMONARY HAEMORRHAGE [None]
  - RESPIRATORY FAILURE [None]
  - STAPHYLOCOCCAL INFECTION [None]
  - SWELLING [None]
  - THROMBOCYTOPENIA [None]
  - VASCULAR ACCESS COMPLICATION [None]
